FAERS Safety Report 21205234 (Version 1)
Quarter: 2022Q3

REPORT INFORMATION
  Report Type: Spontaneous
  Country: IN (occurrence: IN)
  Receive Date: 20220812
  Receipt Date: 20220812
  Transmission Date: 20221027
  Serious: Yes (Hospitalization, Other)
  Sender: FDA-Public Use
  Company Number: IN-Nexus Pharma-000096

PATIENT
  Age: 46 Year
  Sex: Male

DRUGS (7)
  1. COLISTIMETHATE SODIUM [Suspect]
     Active Substance: COLISTIMETHATE SODIUM
     Indication: Acinetobacter infection
     Dosage: DIVIDED INTO THREE DOSES THROUGHOUT THE DAY
     Route: 042
  2. ISONIAZID [Concomitant]
     Active Substance: ISONIAZID
     Indication: Tuberculosis
  3. RIFAMPIN [Concomitant]
     Active Substance: RIFAMPIN
     Indication: Tuberculosis
  4. PYRAZINAMIDE [Concomitant]
     Active Substance: PYRAZINAMIDE
     Indication: Tuberculosis
  5. ETHAMBUTOL [Concomitant]
     Active Substance: ETHAMBUTOL HYDROCHLORIDE
     Indication: Tuberculosis
  6. TEICOPLANIN [Concomitant]
     Active Substance: TEICOPLANIN
     Indication: Fournier^s gangrene
     Dosage: INJECTION
  7. IMIPENEM [Concomitant]
     Active Substance: IMIPENEM
     Indication: Acinetobacter infection

REACTIONS (1)
  - Bartter^s syndrome [Recovered/Resolved]
